FAERS Safety Report 9861318 (Version 1)
Quarter: 2014Q1

REPORT INFORMATION
  Report Type: Spontaneous
  Country: JP (occurrence: JP)
  Receive Date: 20140202
  Receipt Date: 20140202
  Transmission Date: 20141002
  Serious: No
  Sender: FDA-Public Use
  Company Number: JP-ALLERGAN-1305027US

PATIENT
  Age: 37 Year
  Sex: Female

DRUGS (4)
  1. BOTOX [Suspect]
     Indication: TORTICOLLIS
     Dosage: 240 UNITS, SINGLE
     Route: 030
     Dates: start: 20130107, end: 20130107
  2. BOTOX [Suspect]
     Dosage: 240 UNITS, SINGLE
     Route: 030
     Dates: start: 20120927, end: 20120927
  3. BOTOX [Suspect]
     Dosage: 180 UNITS, SINGLE
     Route: 030
     Dates: start: 20120614, end: 20120614
  4. MEXITIL [Concomitant]
     Indication: PRODUCT USED FOR UNKNOWN INDICATION
     Route: 048

REACTIONS (3)
  - Muscular weakness [Recovered/Resolved]
  - Dysphagia [Recovered/Resolved]
  - Dysphagia [Recovered/Resolved]
